FAERS Safety Report 7905186-X (Version None)
Quarter: 2011Q4

REPORT INFORMATION
  Report Type: 
  Country: None (occurrence: None)
  Receive Date: 20111109
  Receipt Date: 20111102
  Transmission Date: 20120403
  Serious: Yes (Other)
  Sender: FDA-Public Use
  Company Number: IE-BAYER-2011-106031

PATIENT
  Age: 24 Year
  Sex: Male
  Weight: 118 kg

DRUGS (2)
  1. AMOCLAV [Concomitant]
     Indication: INFECTED DERMAL CYST
     Dosage: DAILY DOSE 1875 MG
     Dates: start: 20111019, end: 20111101
  2. AVELOX [Suspect]
     Indication: RESPIRATORY TRACT INFECTION
     Dosage: DAILY DOSE 400 MG
     Route: 048
     Dates: start: 20111019, end: 20111025

REACTIONS (4)
  - CRYING [None]
  - NAUSEA [None]
  - LETHARGY [None]
  - NIGHTMARE [None]
